FAERS Safety Report 25451490 (Version 2)
Quarter: 2025Q2

REPORT INFORMATION
  Report Type: Spontaneous
  Country: US (occurrence: US)
  Receive Date: 20250618
  Receipt Date: 20250623
  Transmission Date: 20250717
  Serious: Yes (Hospitalization)
  Sender: PFIZER
  Company Number: US-PFIZER INC-PV202500071816

PATIENT
  Age: 71 Year
  Sex: Female

DRUGS (1)
  1. SOMAVERT [Suspect]
     Active Substance: PEGVISOMANT
     Indication: Acromegaly
     Dosage: 30MG INJECT SUBCUTANEOUSLY DAILY
     Route: 058
     Dates: start: 2005

REACTIONS (1)
  - Joint dislocation [Unknown]
